FAERS Safety Report 14835965 (Version 1)
Quarter: 2018Q2

REPORT INFORMATION
  Report Type: Spontaneous
  Country: US (occurrence: US)
  Receive Date: 20180411
  Receipt Date: 20180411
  Transmission Date: 20180711
  Serious: Yes (Death)
  Sender: FDA-Public Use
  Company Number: None

PATIENT
  Sex: Male

DRUGS (6)
  1. FORTEO [Suspect]
     Active Substance: TERIPARATIDE
     Indication: CARDIAC FAILURE CONGESTIVE
     Route: 058
     Dates: start: 20161005
  2. ENALAPRIL [Concomitant]
     Active Substance: ENALAPRIL
  3. OMPERAZOLE [Concomitant]
     Active Substance: OMEPRAZOLE
  4. ATORVASTATIN [Concomitant]
     Active Substance: ATORVASTATIN
  5. AMIODARONE [Concomitant]
     Active Substance: AMIODARONE
  6. FEUROSEMIDE [Concomitant]

REACTIONS (1)
  - Death [None]
